FAERS Safety Report 23696827 (Version 1)
Quarter: 2024Q2

REPORT INFORMATION
  Report Type: Spontaneous
  Country: IN (occurrence: IN)
  Receive Date: 20240402
  Receipt Date: 20240402
  Transmission Date: 20240716
  Serious: Yes (Other)
  Sender: FDA-Public Use
  Company Number: IN-PFIZER INC-PV202400042012

PATIENT
  Age: 68 Year
  Sex: Female
  Weight: 152 kg

DRUGS (2)
  1. AROMASIN [Suspect]
     Active Substance: EXEMESTANE
     Dosage: 25 MG
     Route: 048
     Dates: start: 202308
  2. EVEROLIMUS [Concomitant]
     Active Substance: EVEROLIMUS
     Dosage: UNK
     Dates: start: 202308

REACTIONS (3)
  - Body mass index increased [Unknown]
  - Dysgeusia [Unknown]
  - Blood glucose increased [Unknown]
